FAERS Safety Report 23626688 (Version 1)
Quarter: 2024Q1

REPORT INFORMATION
  Report Type: Spontaneous
  Country: US (occurrence: None)
  Receive Date: 20240312
  Receipt Date: 20240312
  Transmission Date: 20240409
  Serious: Yes (Other)
  Sender: FDA-Public Use
  Company Number: None

PATIENT
  Age: 80 Year
  Sex: Male
  Weight: 118.35 kg

DRUGS (8)
  1. INVOKANA [Suspect]
     Active Substance: CANAGLIFLOZIN
     Indication: Type 2 diabetes mellitus
     Dosage: FREQUENCY : DAILY;?
     Route: 048
     Dates: start: 20211013, end: 20211117
  2. Amitriptyline 25 mg daily [Concomitant]
     Dates: start: 20210608, end: 20230330
  3. ATORVASTATIN [Concomitant]
     Active Substance: ATORVASTATIN
     Dates: start: 20210226, end: 20220606
  4. Fenofibrate 160 mg daily [Concomitant]
     Dates: start: 20210202
  5. Novolog 30 units 3 times a day before meals [Concomitant]
     Dates: start: 20210913
  6. Tresiba (U200/ml) 92 units daily [Concomitant]
     Dates: start: 20210106
  7. Metformin 1000 mg two times a day [Concomitant]
     Dates: start: 20210222
  8. Lovaza 1g: 2 capsules twice a day [Concomitant]
     Dates: start: 20200924

REACTIONS (1)
  - Abdominal pain lower [None]

NARRATIVE: CASE EVENT DATE: 20211117
